FAERS Safety Report 19402323 (Version 1)
Quarter: 2021Q2

REPORT INFORMATION
  Report Type: Spontaneous
  Country: US (occurrence: US)
  Receive Date: 20210610
  Receipt Date: 20210610
  Transmission Date: 20210717
  Serious: No
  Sender: FDA-Public Use
  Company Number: US-COLLEGIUM PHARMACEUTICAL, INC.-2020CGM00143

PATIENT
  Age: 57 Year
  Sex: Male
  Weight: 71.43 kg

DRUGS (3)
  1. KLONOPIN [Concomitant]
     Active Substance: CLONAZEPAM
  2. XANAX [Concomitant]
     Active Substance: ALPRAZOLAM
  3. XTAMPZA ER [Suspect]
     Active Substance: OXYCODONE
     Indication: PAIN
     Dosage: 27 MG, 1?2 TIMES A DAY AS NEEDED
     Route: 048

REACTIONS (6)
  - Malaise [Unknown]
  - Suspected product tampering [Unknown]
  - Wrong technique in product usage process [Unknown]
  - Inappropriate schedule of product administration [Not Recovered/Not Resolved]
  - False negative investigation result [Unknown]
  - Intentional underdose [Unknown]

NARRATIVE: CASE EVENT DATE: 202006
